FAERS Safety Report 4388259-0 (Version None)
Quarter: 2004Q2

REPORT INFORMATION
  Report Type: 
  Country: None (occurrence: None)
  Receive Date: 20040625
  Receipt Date: 20040614
  Transmission Date: 20050107
  Serious: Yes (Other)
  Sender: FDA-Public Use
  Company Number: 2004040065

PATIENT
  Age: 60 Year
  Sex: Female
  Weight: 58.9676 kg

DRUGS (6)
  1. NEURONTIN [Suspect]
     Indication: BACK PAIN
     Dosage: ORAL
     Route: 048
     Dates: start: 20040401, end: 20040422
  2. LISINOPRIL [Concomitant]
  3. ESCITALOPRAM OXALATE [Concomitant]
  4. AZELASTINE [Concomitant]
  5. RISEDRONATE SODIUM [Concomitant]
  6. TRAZODONE HCL [Concomitant]

REACTIONS (7)
  - OEDEMA PERIPHERAL [None]
  - PAIN IN EXTREMITY [None]
  - POOR PERIPHERAL CIRCULATION [None]
  - POST PROCEDURAL COMPLICATION [None]
  - SPINAL FRACTURE [None]
  - SWELLING [None]
  - WEIGHT INCREASED [None]
